FAERS Safety Report 15259069 (Version 15)
Quarter: 2020Q1

REPORT INFORMATION
  Report Type: Spontaneous
  Country: CA (occurrence: CA)
  Receive Date: 20180809
  Receipt Date: 20200212
  Transmission Date: 20200409
  Serious: Yes (Other)
  Sender: FDA-Public Use
  Company Number: CA-ORION CORPORATION ORION PHARMA-TREX2016-0134

PATIENT
  Age: 76 Year
  Sex: Female

DRUGS (81)
  1. ENBREL [Suspect]
     Active Substance: ETANERCEPT
     Route: 065
  2. ENBREL [Suspect]
     Active Substance: ETANERCEPT
     Dosage: CYCLIC
     Route: 065
  3. ENBREL [Suspect]
     Active Substance: ETANERCEPT
     Route: 058
  4. HUMIRA [Suspect]
     Active Substance: ADALIMUMAB
     Route: 058
  5. ATIVAN [Concomitant]
     Active Substance: LORAZEPAM
     Route: 065
  6. NORFLEX [Concomitant]
     Active Substance: ORPHENADRINE CITRATE
     Route: 065
  7. DESOXIMETASONE. [Concomitant]
     Active Substance: DESOXIMETASONE
     Route: 065
  8. OXYNEO [Concomitant]
     Active Substance: OXYCODONE
     Route: 065
  9. ANAKINRA [Concomitant]
     Active Substance: ANAKINRA
     Route: 065
  10. DARIFENACIN HYDROBROMIDE. [Concomitant]
     Active Substance: DARIFENACIN HYDROBROMIDE
     Route: 065
  11. LOPERAMIDE [Concomitant]
     Active Substance: LOPERAMIDE
     Route: 065
  12. MORPHINE SULFATE. [Concomitant]
     Active Substance: MORPHINE SULFATE
     Route: 065
  13. DEXAMETHASONE. [Concomitant]
     Active Substance: DEXAMETHASONE
     Route: 065
  14. PANTOPRAZOLE SODIUM ANHYDROUS [Concomitant]
     Active Substance: PANTOPRAZOLE SODIUM ANHYDROUS
     Route: 065
  15. LAXISOFT [Concomitant]
     Route: 065
  16. METHOTREXATE (TRADE NAME UNKNOWN) [Suspect]
     Active Substance: METHOTREXATE
     Route: 065
  17. ACTEMRA [Suspect]
     Active Substance: TOCILIZUMAB
     Indication: RHEUMATOID ARTHRITIS
     Route: 065
     Dates: end: 20150203
  18. ENBREL [Suspect]
     Active Substance: ETANERCEPT
     Route: 065
  19. REMICADE [Suspect]
     Active Substance: INFLIXIMAB
     Route: 042
  20. RITUXIMAB. [Suspect]
     Active Substance: RITUXIMAB
     Indication: PRODUCT USED FOR UNKNOWN INDICATION
     Route: 065
  21. CORTISONE [Concomitant]
     Active Substance: CORTISONE
     Route: 014
  22. ACETAMINOPHEN. [Concomitant]
     Active Substance: ACETAMINOPHEN
     Route: 065
  23. KADIAN [Concomitant]
     Active Substance: MORPHINE SULFATE
     Route: 065
  24. PLANTAGO OVATA [Concomitant]
     Active Substance: HERBALS\PLANTAGO OVATA LEAF
     Route: 065
  25. TRIAMCINOLONE ACETONIDE. [Concomitant]
     Active Substance: TRIAMCINOLONE ACETONIDE
     Route: 065
  26. METHOTREXATE (TRADE NAME UNKNOWN) [Suspect]
     Active Substance: METHOTREXATE
     Dosage: 4 TIMES/WEEK
     Route: 067
  27. ENBREL [Suspect]
     Active Substance: ETANERCEPT
     Indication: RHEUMATOID ARTHRITIS
     Dosage: 2 TIMES/WEEK
     Route: 058
     Dates: start: 200205, end: 200409
  28. HUMIRA [Suspect]
     Active Substance: ADALIMUMAB
     Indication: RHEUMATOID ARTHRITIS
     Dosage: CYCLIC
     Route: 058
     Dates: start: 2005, end: 2006
  29. REMICADE [Suspect]
     Active Substance: INFLIXIMAB
     Route: 042
     Dates: start: 2015
  30. XELJANZ [Suspect]
     Active Substance: TOFACITINIB CITRATE
     Indication: PRODUCT USED FOR UNKNOWN INDICATION
     Route: 065
  31. HYDROXYCHLOROQUINE [Suspect]
     Active Substance: HYDROXYCHLOROQUINE
     Indication: RHEUMATOID ARTHRITIS
     Route: 065
  32. HYDROXYCHLOROQUINE [Suspect]
     Active Substance: HYDROXYCHLOROQUINE
     Route: 065
  33. HYDROXYCHLOROQUINE SULFATE. [Suspect]
     Active Substance: HYDROXYCHLOROQUINE SULFATE
     Indication: RHEUMATOID ARTHRITIS
     Route: 065
  34. CORTISONE [Concomitant]
     Active Substance: CORTISONE
     Route: 030
  35. LASIX [Concomitant]
     Active Substance: FUROSEMIDE
     Route: 065
  36. RESTASIS [Concomitant]
     Active Substance: CYCLOSPORINE
     Route: 065
  37. TRIMETHOPRIM. [Concomitant]
     Active Substance: TRIMETHOPRIM
     Route: 065
  38. DIPHENHYDRAMINE. [Concomitant]
     Active Substance: DIPHENHYDRAMINE
     Route: 065
  39. DYCLONE [Concomitant]
     Active Substance: DYCLONINE HYDROCHLORIDE
     Route: 065
  40. PANTOPRAZOLE [Concomitant]
     Active Substance: PANTOPRAZOLE
     Route: 065
  41. METHOTREXATE (TRADE NAME UNKNOWN) [Suspect]
     Active Substance: METHOTREXATE
     Indication: RHEUMATOID ARTHRITIS
     Route: 065
     Dates: end: 200411
  42. GOLD [Suspect]
     Active Substance: GOLD
     Indication: RHEUMATOID ARTHRITIS
     Route: 065
  43. HUMIRA [Suspect]
     Active Substance: ADALIMUMAB
     Route: 065
  44. PLAQUENIL [Suspect]
     Active Substance: HYDROXYCHLOROQUINE SULFATE
     Indication: RHEUMATOID ARTHRITIS
     Route: 065
  45. REMICADE [Suspect]
     Active Substance: INFLIXIMAB
     Indication: RHEUMATOID ARTHRITIS
     Route: 042
     Dates: start: 200407, end: 2005
  46. REMICADE [Suspect]
     Active Substance: INFLIXIMAB
     Route: 042
  47. BENADRYL [Concomitant]
     Active Substance: DIPHENHYDRAMINE HYDROCHLORIDE
     Dosage: AS NECESSARY
     Route: 065
  48. CODEINE [Concomitant]
     Active Substance: CODEINE
     Route: 065
  49. ORENCIA [Suspect]
     Active Substance: ABATACEPT
     Indication: RHEUMATOID ARTHRITIS
     Route: 042
     Dates: start: 200611, end: 2007
  50. SODIUM AUROTHIOMALATE [Suspect]
     Active Substance: GOLD SODIUM THIOMALATE
     Indication: PRODUCT USED FOR UNKNOWN INDICATION
     Route: 030
  51. SODIUM AUROTHIOMALATE [Suspect]
     Active Substance: GOLD SODIUM THIOMALATE
     Route: 065
  52. TOCILIZUMAB. [Suspect]
     Active Substance: TOCILIZUMAB
     Indication: RHEUMATOID ARTHRITIS
     Route: 065
  53. ARAVA [Suspect]
     Active Substance: LEFLUNOMIDE
  54. RITUXAN [Concomitant]
     Active Substance: RITUXIMAB
     Dosage: DAY 1 +15
     Route: 042
     Dates: start: 2007, end: 201010
  55. DARIFENACIN HYDROBROMIDE. [Concomitant]
     Active Substance: DARIFENACIN HYDROBROMIDE
     Route: 065
  56. DILAUDID [Concomitant]
     Active Substance: HYDROMORPHONE HYDROCHLORIDE
     Indication: ANALGESIC THERAPY
     Route: 065
     Dates: start: 201503
  57. FUROSEMIDE. [Concomitant]
     Active Substance: FUROSEMIDE
     Route: 065
  58. OMNARIS [Concomitant]
     Active Substance: CICLESONIDE
     Route: 065
  59. SYNTHROID [Concomitant]
     Active Substance: LEVOTHYROXINE SODIUM
     Route: 065
  60. KINERET [Concomitant]
     Active Substance: ANAKINRA
     Route: 065
  61. ENABLEX [Concomitant]
     Active Substance: DARIFENACIN HYDROBROMIDE
     Route: 065
  62. ENABLEX [Concomitant]
     Active Substance: DARIFENACIN HYDROBROMIDE
     Route: 065
  63. HYDROMORPHONE [Concomitant]
     Active Substance: HYDROMORPHONE
     Route: 065
  64. DARIFENACIN. [Concomitant]
     Active Substance: DARIFENACIN
     Route: 065
  65. KENALOG [Concomitant]
     Active Substance: TRIAMCINOLONE ACETONIDE
     Route: 065
  66. METHOTREXATE (TRADE NAME UNKNOWN) [Suspect]
     Active Substance: METHOTREXATE
     Dosage: 4 TIMES/WEEK
     Route: 065
  67. METHOTREXATE (TRADE NAME UNKNOWN) [Suspect]
     Active Substance: METHOTREXATE
     Route: 065
  68. HUMIRA [Suspect]
     Active Substance: ADALIMUMAB
     Route: 058
  69. ORENCIA [Suspect]
     Active Substance: ABATACEPT
     Route: 042
  70. VAGIFEM [Concomitant]
     Active Substance: ESTRADIOL
     Route: 067
  71. URISPAS [Concomitant]
     Active Substance: FLAVOXATE HYDROCHLORIDE
     Route: 065
  72. METHOTREXATE (TRADE NAME UNKNOWN) [Suspect]
     Active Substance: METHOTREXATE
     Route: 065
  73. ACTEMRA [Suspect]
     Active Substance: TOCILIZUMAB
     Route: 065
  74. ENBREL [Suspect]
     Active Substance: ETANERCEPT
     Dosage: CYCLIC
     Route: 058
  75. APO-HYDROXYQUINE [Suspect]
     Active Substance: HYDROXYCHLOROQUINE SULFATE
     Indication: RHEUMATOID ARTHRITIS
     Route: 065
  76. ARAVA [Suspect]
     Active Substance: LEFLUNOMIDE
     Indication: RHEUMATOID ARTHRITIS
     Route: 065
  77. PANTOLOC [Concomitant]
     Active Substance: PANTOPRAZOLE SODIUM
     Route: 065
  78. LEFLUNOMIDE. [Concomitant]
     Active Substance: LEFLUNOMIDE
     Route: 065
  79. ABATACEPT [Concomitant]
     Active Substance: ABATACEPT
     Route: 065
  80. DYCLONINE HYDROCHLORIDE [Concomitant]
     Active Substance: DYCLONINE HYDROCHLORIDE
     Route: 065
  81. PANTOPRAZOLE SODIUM. [Concomitant]
     Active Substance: PANTOPRAZOLE SODIUM
     Route: 065

REACTIONS (31)
  - C-reactive protein abnormal [Not Recovered/Not Resolved]
  - Tenderness [Not Recovered/Not Resolved]
  - C-reactive protein increased [Not Recovered/Not Resolved]
  - Drug ineffective [Not Recovered/Not Resolved]
  - Off label use [Not Recovered/Not Resolved]
  - Herpes zoster [Not Recovered/Not Resolved]
  - Arthritis [Not Recovered/Not Resolved]
  - Infection [Not Recovered/Not Resolved]
  - Oral pain [Not Recovered/Not Resolved]
  - Joint swelling [Not Recovered/Not Resolved]
  - Liver function test abnormal [Not Recovered/Not Resolved]
  - Inappropriate schedule of product administration [Not Recovered/Not Resolved]
  - Contraindicated product administered [Recovered/Resolved]
  - Drug intolerance [Not Recovered/Not Resolved]
  - Anaemia [Not Recovered/Not Resolved]
  - Soft tissue disorder [Not Recovered/Not Resolved]
  - Soft tissue swelling [Recovered/Resolved]
  - Product use issue [Not Recovered/Not Resolved]
  - Drug hypersensitivity [Not Recovered/Not Resolved]
  - Swelling [Not Recovered/Not Resolved]
  - Rheumatoid arthritis [Unknown]
  - Peripheral swelling [Not Recovered/Not Resolved]
  - Incorrect route of product administration [Not Recovered/Not Resolved]
  - Fibromyalgia [Not Recovered/Not Resolved]
  - Stomatitis [Not Recovered/Not Resolved]
  - Therapeutic product effect incomplete [Unknown]
  - Blood cholesterol increased [Not Recovered/Not Resolved]
  - Pneumonia viral [Not Recovered/Not Resolved]
  - Leukopenia [Not Recovered/Not Resolved]
  - Synovitis [Not Recovered/Not Resolved]
  - Arthralgia [Unknown]
